FAERS Safety Report 7981279-6 (Version None)
Quarter: 2011Q4

REPORT INFORMATION
  Report Type: 
  Country: None (occurrence: None)
  Receive Date: 20111212
  Receipt Date: 20111129
  Transmission Date: 20120403
  Serious: Yes (Hospitalization)
  Sender: FDA-Public Use
  Company Number: 1000022811

PATIENT
  Age: 90 Year
  Sex: Male

DRUGS (4)
  1. ISKEDYL FORT (DIHYDROERGOCRISTINE MESILATE, RAUBASINE) (TABLETS) [Suspect]
     Indication: ARTERIOSCLEROSIS
     Dosage: 2 DOSAGE FORMS (1 DOSAGE FORMS, 2 IN 1 D), ORAL
     Route: 048
     Dates: end: 20110624
  2. PERMIXON (LIPIDOSTEROLIC EXTRACT OF SERENOA REPENS) [Suspect]
     Indication: PROSTATIC ADENOMA
     Dosage: 2 DOSAGE FORMS (1 IN DOSAGE FORMS, 2 IN 1 D), ORAL
     Route: 048
     Dates: end: 20110624
  3. TENSTATEN (CICLETANINE HYDROCHLORIDE) (50 MILLIGRAM) [Suspect]
     Indication: HYPERTENSION
     Dosage: 50 MG, ORAL
     Route: 048
     Dates: end: 20110624
  4. MILNACIPRAN (MILNACIPRAN HYDROCHLORIDE) (CAPSULES) [Suspect]
     Indication: DEPRESSION
     Dosage: 100 MG (50 MG, 2 IN 1 D), ORAL
     Route: 048
     Dates: end: 20110627

REACTIONS (6)
  - HEADACHE [None]
  - BALANCE DISORDER [None]
  - NAUSEA [None]
  - ORTHOSTATIC HYPOTENSION [None]
  - VERTIGO [None]
  - TREMOR [None]
